FAERS Safety Report 16520434 (Version 4)
Quarter: 2019Q3

REPORT INFORMATION
  Report Type: Spontaneous
  Country: US (occurrence: US)
  Receive Date: 20190702
  Receipt Date: 20190801
  Transmission Date: 20191004
  Serious: No
  Sender: FDA-Public Use
  Company Number: US-SA-2019SA178417

PATIENT
  Age: 43 Year
  Sex: Male

DRUGS (1)
  1. CABLIVI [Suspect]
     Active Substance: CAPLACIZUMAB-YHDP
     Indication: THROMBOTIC MICROANGIOPATHY
     Dosage: 11 MG, QD
     Route: 058
     Dates: start: 20190629

REACTIONS (5)
  - Blood lactate dehydrogenase decreased [Unknown]
  - Platelet count abnormal [Recovered/Resolved]
  - Rash [Recovered/Resolved]
  - Miliaria [Not Recovered/Not Resolved]
  - Product packaging issue [Unknown]
